FAERS Safety Report 7237635-7 (Version None)
Quarter: 2011Q1

REPORT INFORMATION
  Report Type: 
  Country: None (occurrence: None)
  Receive Date: 20110121
  Receipt Date: 20110111
  Transmission Date: 20110831
  Serious: Yes (Other)
  Sender: FDA-Public Use
  Company Number: PHHY2011JP03443

PATIENT
  Sex: Male

DRUGS (2)
  1. FASTIC [Suspect]
     Indication: DIABETES MELLITUS
     Dosage: 30 MG DAILY
     Route: 048
     Dates: start: 20101101
  2. FASTIC [Suspect]
     Dosage: 90 MG DAILY
     Route: 048
     Dates: start: 20101220

REACTIONS (2)
  - TRANSAMINASES INCREASED [None]
  - HEPATIC FUNCTION ABNORMAL [None]
